FAERS Safety Report 6697378-5 (Version None)
Quarter: 2010Q2

REPORT INFORMATION
  Report Type: 
  Country: None (occurrence: None)
  Receive Date: 20100426
  Receipt Date: 20100421
  Transmission Date: 20101027
  Serious: Yes (Life-Threatening)
  Sender: FDA-Public Use
  Company Number: JP-ASTRAZENECA-2010SE17564

PATIENT
  Age: 82 Year
  Sex: Male
  Weight: 75 kg

DRUGS (12)
  1. BICALUTAMIDE [Suspect]
     Indication: PROSTATE CANCER
     Route: 048
  2. DISOPYRAMIDE [Suspect]
     Indication: ARRHYTHMIA
  3. GARENOXACIN [Suspect]
     Indication: PNEUMONIA
  4. SILODOSIN [Suspect]
     Indication: BENIGN PROSTATIC HYPERPLASIA
  5. IMIDAPRIL HYDROCHLORIDE [Concomitant]
     Indication: HYPERTENSION
  6. AMLODIPINE BESYLATE [Concomitant]
     Indication: HYPERTENSION
  7. ISOSORBIDE MONONITRATE [Concomitant]
     Indication: ANGINA PECTORIS
  8. PRAVASTATIN SODIUM [Concomitant]
     Indication: HYPERLIPIDAEMIA
  9. FLUTOPRAZEPAM [Concomitant]
     Indication: DEPRESSION
  10. BAKUMONDOTO [Concomitant]
     Indication: ASTHMA
  11. BOFUTUSYOSAN [Concomitant]
     Indication: OBESITY
  12. CEFOZOPRAN HYDROCHLORIDE [Concomitant]
     Route: 042

REACTIONS (4)
  - LOSS OF CONSCIOUSNESS [None]
  - PNEUMONIA BACTERIAL [None]
  - SPEECH DISORDER [None]
  - TORSADE DE POINTES [None]
